FAERS Safety Report 16327752 (Version 1)
Quarter: 2019Q2

REPORT INFORMATION
  Report Type: Spontaneous
  Country: FR (occurrence: FR)
  Receive Date: 20190517
  Receipt Date: 20190517
  Transmission Date: 20190711
  Serious: Yes (Hospitalization)
  Sender: FDA-Public Use
  Company Number: FR-TEVA-2019-FR-1049910

PATIENT
  Age: 69 Year
  Sex: Female
  Weight: 73 kg

DRUGS (8)
  1. PRAVASTATINE SODIQUE [Suspect]
     Active Substance: PRAVASTATIN SODIUM
     Route: 048
     Dates: start: 20180422, end: 20190319
  2. MODOPAR [Concomitant]
     Active Substance: BENSERAZIDE HYDROCHLORIDE\LEVODOPA
     Route: 048
  3. TRULICITY [Suspect]
     Active Substance: DULAGLUTIDE
     Indication: TYPE 2 DIABETES MELLITUS
     Route: 030
     Dates: start: 20180122, end: 20190319
  4. EURELIX [Concomitant]
     Route: 048
  5. COVERSYL [Concomitant]
     Active Substance: PERINDOPRIL
     Route: 048
  6. TRIVASTAL 50 MG L.P., COMPRIME ENROBE A LIBERATION PROLONGEE [Concomitant]
     Route: 048
  7. DEPAKINE [Concomitant]
     Active Substance: VALPROATE SODIUM
     Route: 048
  8. REPAGLINIDE. [Suspect]
     Active Substance: REPAGLINIDE
     Indication: TYPE 2 DIABETES MELLITUS
     Route: 048
     Dates: start: 20190121, end: 20190319

REACTIONS (1)
  - Pancreatitis acute [Recovered/Resolved]

NARRATIVE: CASE EVENT DATE: 20190319
